FAERS Safety Report 5773005-6 (Version None)
Quarter: 2008Q2

REPORT INFORMATION
  Report Type: 
  Country: None (occurrence: None)
  Receive Date: 20080613
  Receipt Date: 20080603
  Transmission Date: 20081010
  Serious: Yes (Hospitalization)
  Sender: FDA-Public Use
  Company Number: ID-ABBOTT-07P-079-0416895-01

PATIENT
  Sex: Male

DRUGS (12)
  1. NORVIR SOFT GELATIN CAPSULES (NOT ADMINISTERED) [Suspect]
     Indication: HIV INFECTION
     Dosage: N/A
  2. KALETRA [Suspect]
     Indication: HIV INFECTION
     Route: 048
     Dates: start: 20060531, end: 20070611
  3. TRUVADA [Concomitant]
     Indication: DRUG USE FOR UNKNOWN INDICATION
     Route: 048
     Dates: start: 20060531, end: 20070611
  4. METHYLPREDNISOLONE [Concomitant]
     Indication: DRUG USE FOR UNKNOWN INDICATION
     Dates: start: 20070321, end: 20070612
  5. ERGOCALCIFEROL [Concomitant]
     Indication: DRUG USE FOR UNKNOWN INDICATION
     Dates: start: 20070414
  6. MECOBALAMIN [Concomitant]
     Indication: DRUG USE FOR UNKNOWN INDICATION
     Dates: start: 20070323
  7. WARFARIN [Concomitant]
     Indication: DRUG USE FOR UNKNOWN INDICATION
     Dates: start: 20070417
  8. HP PRO [Concomitant]
     Indication: DRUG USE FOR UNKNOWN INDICATION
     Dates: start: 20070414
  9. ESTAZOLAM [Concomitant]
     Indication: DRUG USE FOR UNKNOWN INDICATION
     Dates: start: 20070501, end: 20070502
  10. GLIMEPIRIDE [Concomitant]
     Indication: DRUG USE FOR UNKNOWN INDICATION
     Dates: start: 20070502
  11. RANITIDINE [Concomitant]
     Indication: DRUG USE FOR UNKNOWN INDICATION
     Dates: start: 20070501, end: 20070501
  12. POTASSIUM GLUCONATE TAB [Concomitant]
     Indication: DRUG USE FOR UNKNOWN INDICATION
     Dates: start: 20070503

REACTIONS (4)
  - DECREASED APPETITE [None]
  - DIARRHOEA [None]
  - PYREXIA [None]
  - VOMITING [None]
